FAERS Safety Report 4417723-0 (Version None)
Quarter: 2004Q3

REPORT INFORMATION
  Report Type: 
  Country: None (occurrence: None)
  Receive Date: 20040803
  Receipt Date: 20040722
  Transmission Date: 20050211
  Serious: Yes (Hospitalization)
  Sender: FDA-Public Use
  Company Number: 2004049594

PATIENT
  Age: 79 Year
  Sex: Female

DRUGS (4)
  1. BENADRYL [Suspect]
     Indication: DERMATITIS CONTACT
     Dosage: ORAL
     Route: 048
     Dates: end: 20040721
  2. PREDNISONE [Suspect]
     Indication: DERMATITIS CONTACT
     Dosage: ORAL
     Route: 048
  3. DRUG UNSPECIFIED (DRUG UNSPECIFIED) [Concomitant]
  4. ANTIHYPERTENSIVES (ANTIHYPERTENSIVES) [Concomitant]

REACTIONS (2)
  - CONVULSION [None]
  - LOSS OF CONSCIOUSNESS [None]
